FAERS Safety Report 8266418-4 (Version None)
Quarter: 2012Q2

REPORT INFORMATION
  Report Type: 
  Country: None (occurrence: None)
  Receive Date: 20120406
  Receipt Date: 20120328
  Transmission Date: 20120825
  Serious: Yes (Hospitalization, Other)
  Sender: FDA-Public Use
  Company Number: US-ASTRAZENECA-2011SE35834

PATIENT
  Age: 66 Year
  Sex: Male

DRUGS (3)
  1. KETOCONAZOLE [Suspect]
     Route: 065
  2. NEXIUM [Suspect]
     Route: 048
  3. TOPROL-XL [Suspect]
     Route: 048

REACTIONS (7)
  - RENAL FAILURE [None]
  - FULL BLOOD COUNT INCREASED [None]
  - PROSTATE CANCER [None]
  - METASTATIC NEOPLASM [None]
  - ALOPECIA [None]
  - AGEUSIA [None]
  - PROSTATIC SPECIFIC ANTIGEN INCREASED [None]
